FAERS Safety Report 23152588 (Version 3)
Quarter: 2023Q4

REPORT INFORMATION
  Report Type: Report from Study
  Country: NL (occurrence: NL)
  Receive Date: 20231107
  Receipt Date: 20231231
  Transmission Date: 20240109
  Serious: Yes (Other)
  Sender: FDA-Public Use
  Company Number: NL-ABBVIE-5484162

PATIENT
  Sex: Male

DRUGS (5)
  1. CARBIDOPA\LEVODOPA [Suspect]
     Active Substance: CARBIDOPA\LEVODOPA
     Indication: Parkinson^s disease
     Dosage: MD: 0.0 ML, CD: 4.6 ML/H, ED: 0.0 ML
     Route: 050
     Dates: start: 20231030, end: 20231030
  2. CARBIDOPA\LEVODOPA [Suspect]
     Active Substance: CARBIDOPA\LEVODOPA
     Route: 050
     Dates: start: 20130710
  3. CARBIDOPA\LEVODOPA [Suspect]
     Active Substance: CARBIDOPA\LEVODOPA
     Dosage: MD: 0.0 ML, CD: 3.2 ML/H, ED: 0.0 ML
     Route: 050
     Dates: start: 20231030, end: 20231222
  4. CARBIDOPA\LEVODOPA [Suspect]
     Active Substance: CARBIDOPA\LEVODOPA
     Dosage: MD: 0.0 ML, CD: 4.6 ML/H, ED: 0.0 ML, CND: 3.2 ML/H
     Route: 050
     Dates: start: 20231222
  5. CARBIDOPA\LEVODOPA [Suspect]
     Active Substance: CARBIDOPA\LEVODOPA
     Dosage: CND: 3.2 ML/H, DURATION TEXT: REMAINS AT 16 HOURS
     Route: 050
     Dates: start: 20230812, end: 20231030

REACTIONS (19)
  - Palliative care [Not Recovered/Not Resolved]
  - Confusional state [Not Recovered/Not Resolved]
  - Device dislocation [Not Recovered/Not Resolved]
  - Bedridden [Not Recovered/Not Resolved]
  - Dyskinesia [Recovering/Resolving]
  - Device material issue [Not Recovered/Not Resolved]
  - Cognitive disorder [Not Recovered/Not Resolved]
  - Incorrect dose administered [Not Recovered/Not Resolved]
  - Fall [Recovered/Resolved]
  - Stoma site erythema [Not Recovered/Not Resolved]
  - Respiratory tract infection [Not Recovered/Not Resolved]
  - Hypophagia [Not Recovered/Not Resolved]
  - Off label use [Not Recovered/Not Resolved]
  - Joint injury [Not Recovered/Not Resolved]
  - Restlessness [Not Recovered/Not Resolved]
  - Incontinence [Not Recovered/Not Resolved]
  - Device kink [Not Recovered/Not Resolved]
  - Hallucination [Recovered/Resolved]
  - Decubitus ulcer [Not Recovered/Not Resolved]

NARRATIVE: CASE EVENT DATE: 20230101
